FAERS Safety Report 4497667-9 (Version None)
Quarter: 2004Q4

REPORT INFORMATION
  Report Type: 
  Country: None (occurrence: None)
  Receive Date: 20041108
  Receipt Date: 20041025
  Transmission Date: 20050328
  Serious: Yes (Death)
  Sender: FDA-Public Use
  Company Number: JP-JNJFOC-20041001029

PATIENT
  Sex: Male

DRUGS (4)
  1. DUROTEP [Suspect]
     Indication: CANCER PAIN
     Route: 062
     Dates: start: 20040707, end: 20040709
  2. AMINOPHYLLINE [Concomitant]
     Indication: BRONCHOSTENOSIS
     Route: 042
     Dates: start: 20040707, end: 20040709
  3. FUROSEMIDE [Concomitant]
     Indication: ASCITES
     Route: 042
     Dates: start: 20040707, end: 20040709
  4. HYDROCORTISONE SODIUM SUCCINATE [Concomitant]
     Indication: BRONCHOSTENOSIS
     Route: 042
     Dates: start: 20040707, end: 20040709

REACTIONS (1)
  - MALIGNANT NEOPLASM PROGRESSION [None]
